FAERS Safety Report 24042336 (Version 1)
Quarter: 2024Q3

REPORT INFORMATION
  Report Type: Spontaneous
  Country: US (occurrence: US)
  Receive Date: 20240702
  Receipt Date: 20240702
  Transmission Date: 20241017
  Serious: No
  Sender: ALKERMES
  Company Number: US-ALKERMES INC.-ALK-2024-001729

PATIENT
  Sex: Female

DRUGS (1)
  1. VIVITROL [Suspect]
     Active Substance: NALTREXONE
     Indication: Dependence
     Dosage: 380 MILLIGRAM, QMO
     Route: 030
     Dates: start: 2024

REACTIONS (3)
  - Peripheral swelling [Unknown]
  - Urticaria [Unknown]
  - Injection site mass [Unknown]

NARRATIVE: CASE EVENT DATE: 20240101
